FAERS Safety Report 12448169 (Version 1)
Quarter: 2016Q2

REPORT INFORMATION
  Report Type: Spontaneous
  Country: AT (occurrence: AT)
  Receive Date: 20160608
  Receipt Date: 20160608
  Transmission Date: 20160815
  Serious: Yes (Other)
  Sender: FDA-Public Use
  Company Number: AT-TAKEDA-2016TUS009367

PATIENT
  Age: 39 Year

DRUGS (1)
  1. ENTYVIO [Suspect]
     Active Substance: VEDOLIZUMAB
     Indication: CROHN^S DISEASE
     Dosage: 300 MG, UNK
     Route: 042
     Dates: start: 201510, end: 201603

REACTIONS (4)
  - Intestinal stenosis [Unknown]
  - Erythema nodosum [Unknown]
  - Arthropathy [Unknown]
  - Drug ineffective [Unknown]
